FAERS Safety Report 7305145-4 (Version None)
Quarter: 2011Q1

REPORT INFORMATION
  Report Type: 
  Country: None (occurrence: None)
  Receive Date: 20110222
  Receipt Date: 20101220
  Transmission Date: 20110831
  Serious: No
  Sender: FDA-Public Use
  Company Number: US-B.I. PHARMACEUTICALS,INC./RIDGEFIELD-2010-BP-15198BP

PATIENT
  Sex: Female

DRUGS (2)
  1. SLEEPING PILLS [Concomitant]
     Indication: INSOMNIA
  2. PRADAXA [Suspect]

REACTIONS (4)
  - NERVOUSNESS [None]
  - BLOOD PRESSURE INCREASED [None]
  - HEART RATE IRREGULAR [None]
  - EPISTAXIS [None]
